FAERS Safety Report 18231948 (Version 1)
Quarter: 2020Q3

REPORT INFORMATION
  Report Type: Spontaneous
  Country: US (occurrence: US)
  Receive Date: 20200903
  Receipt Date: 20200903
  Transmission Date: 20201103
  Serious: Yes (Hospitalization)
  Sender: FDA-Public Use
  Company Number: None

PATIENT
  Age: 79 Year
  Sex: Female

DRUGS (1)
  1. ONDANSETRON HYDROCHLORIDE 8 MG GLENMARK PHARMACEUTICALS [Suspect]
     Active Substance: ONDANSETRON HYDROCHLORIDE
     Indication: PLASMA CELL MYELOMA
     Dosage: ?          OTHER FREQUENCY:SEE EVENT;?
     Route: 048
     Dates: start: 20200512

REACTIONS (3)
  - Presyncope [None]
  - Atrial fibrillation [None]
  - Cardiac disorder [None]

NARRATIVE: CASE EVENT DATE: 20200830
